FAERS Safety Report 7889036-6 (Version None)
Quarter: 2011Q4

REPORT INFORMATION
  Report Type: 
  Country: None (occurrence: None)
  Receive Date: 20111103
  Receipt Date: 20111020
  Transmission Date: 20120403
  Serious: Yes (Hospitalization)
  Sender: FDA-Public Use
  Company Number: JP-ROCHE-720418

PATIENT
  Sex: Male

DRUGS (23)
  1. ACTEMRA [Suspect]
     Route: 041
     Dates: start: 20081104, end: 20081104
  2. ACTEMRA [Suspect]
     Route: 041
     Dates: start: 20090303, end: 20090303
  3. LANSOPRAZOLE [Concomitant]
     Route: 048
  4. ACTEMRA [Suspect]
     Indication: RHEUMATOID ARTHRITIS
     Route: 041
     Dates: start: 20080707, end: 20080707
  5. ACTEMRA [Suspect]
     Route: 041
     Dates: start: 20080804, end: 20080804
  6. ACTEMRA [Suspect]
     Route: 041
     Dates: start: 20081007, end: 20081007
  7. ACTEMRA [Suspect]
     Route: 041
     Dates: start: 20090430, end: 20090430
  8. ACTEMRA [Suspect]
     Route: 041
     Dates: start: 20090528, end: 20090528
  9. ACTEMRA [Suspect]
     Route: 041
     Dates: start: 20081204, end: 20081204
  10. ACTEMRA [Suspect]
     Route: 041
     Dates: start: 20090106, end: 20090106
  11. LORAZEPAM [Concomitant]
     Route: 048
  12. LENDORMIN [Concomitant]
     Route: 048
  13. PROGRAF [Concomitant]
     Route: 048
  14. CRESTOR [Concomitant]
     Route: 048
  15. ACTEMRA [Suspect]
     Route: 041
     Dates: start: 20090402, end: 20090402
  16. DICLOFENAC SODIUM [Suspect]
     Indication: RHEUMATOID ARTHRITIS
     Dosage: FORM: PERORAL AGENT.
     Route: 048
  17. METHOTREXATE [Concomitant]
     Route: 048
  18. FOLIC ACID [Concomitant]
     Route: 048
  19. DICLOFENAC SODIUM [Suspect]
     Route: 054
  20. PREDNISOLONE [Concomitant]
     Dosage: DRUG NAME: PREDOHAN.
     Route: 048
  21. ACTEMRA [Suspect]
     Route: 041
     Dates: start: 20080902, end: 20080902
  22. ACTEMRA [Suspect]
     Route: 041
     Dates: start: 20090203, end: 20090203
  23. ACTEMRA [Suspect]
     Route: 041

REACTIONS (5)
  - PAIN IN EXTREMITY [None]
  - UPPER RESPIRATORY TRACT INFLAMMATION [None]
  - HEPATIC FUNCTION ABNORMAL [None]
  - HYPERLIPIDAEMIA [None]
  - COAGULATION FACTOR DEFICIENCY [None]
